FAERS Safety Report 15823822 (Version 1)
Quarter: 2019Q1

REPORT INFORMATION
  Report Type: Spontaneous
  Country: US (occurrence: US)
  Receive Date: 20190114
  Receipt Date: 20190114
  Transmission Date: 20190417
  Serious: No
  Sender: FDA-Public Use
  Company Number: US-PFIZER INC-2019017066

PATIENT
  Age: 23 Year
  Sex: Male
  Weight: 134 kg

DRUGS (2)
  1. LYRICA [Suspect]
     Active Substance: PREGABALIN
     Dosage: 500 MG, DAILY(100MG CAPSULES TAKEN BY MOUTH-2 CAPSULE IN THE MORNING AND 3 CAPSULES AT NIGHT DAILY)
     Route: 048
     Dates: start: 2011
  2. LYRICA [Suspect]
     Active Substance: PREGABALIN
     Indication: TOXIC NEUROPATHY
     Dosage: 600 MG, DAILY (6 OF THE 100MG CAPSULES BY MOUTH DAILY )
     Route: 048

REACTIONS (5)
  - Dizziness [Recovering/Resolving]
  - Product use issue [Unknown]
  - Weight increased [Recovering/Resolving]
  - Palpitations [Recovering/Resolving]
  - Product use in unapproved indication [Not Recovered/Not Resolved]

NARRATIVE: CASE EVENT DATE: 2011
